FAERS Safety Report 10455243 (Version 2)
Quarter: 2014Q3

REPORT INFORMATION
  Report Type: Spontaneous
  Country: ES (occurrence: ES)
  Receive Date: 20140916
  Receipt Date: 20140929
  Transmission Date: 20150326
  Serious: Yes (Life-Threatening, Hospitalization)
  Sender: FDA-Public Use
  Company Number: ES-ROCHE-1461534

PATIENT
  Age: 87 Year
  Sex: Male

DRUGS (15)
  1. UROLOSIN [Concomitant]
     Route: 065
  2. SPIRIVA RESPIMAT [Concomitant]
     Active Substance: TIOTROPIUM BROMIDE
     Route: 065
  3. PALEXIA [Suspect]
     Active Substance: TAPENTADOL HYDROCHLORIDE
     Indication: DIABETIC NEUROPATHY
     Route: 048
     Dates: start: 20140903, end: 20140908
  4. EKISTOL [Concomitant]
     Active Substance: CILOSTAZOL
     Route: 048
  5. ADIRO [Concomitant]
     Active Substance: ASPIRIN
     Route: 048
  6. PLAVIX [Concomitant]
     Active Substance: CLOPIDOGREL BISULFATE
     Route: 065
  7. LYRICA [Suspect]
     Active Substance: PREGABALIN
     Indication: NEURALGIA
     Route: 048
     Dates: start: 20140903, end: 20140908
  8. DALPARAN [Suspect]
     Active Substance: ZOLPIDEM TARTRATE
     Indication: PRODUCT USED FOR UNKNOWN INDICATION
     Route: 048
     Dates: start: 2014
  9. SEGURIL [Concomitant]
     Active Substance: FUROSEMIDE
     Route: 065
  10. RIVOTRIL [Suspect]
     Active Substance: CLONAZEPAM
     Indication: PRODUCT USED FOR UNKNOWN INDICATION
     Route: 048
     Dates: start: 2014
  11. PALEXIA [Suspect]
     Active Substance: TAPENTADOL HYDROCHLORIDE
     Route: 048
  12. SEREVENT [Concomitant]
     Active Substance: SALMETEROL XINAFOATE
     Route: 065
  13. METFORMIN HYDROCHLORIDE. [Concomitant]
     Active Substance: METFORMIN HYDROCHLORIDE
     Route: 048
  14. HEMOVAS [Concomitant]
     Route: 065
  15. TRAVATAN [Concomitant]
     Active Substance: TRAVOPROST
     Dosage: 40 MICROGRAM/ML.
     Route: 065

REACTIONS (1)
  - Depressed level of consciousness [Unknown]

NARRATIVE: CASE EVENT DATE: 20140907
